FAERS Safety Report 10521136 (Version 1)
Quarter: 2014Q4

REPORT INFORMATION
  Report Type: Spontaneous
  Country: US (occurrence: US)
  Receive Date: 20141016
  Receipt Date: 20141016
  Transmission Date: 20150528
  Serious: No
  Sender: FDA-Public Use
  Company Number: US-BIOGENIDEC-2014BI105058

PATIENT
  Age: 52 Year
  Sex: Female

DRUGS (2)
  1. TECFIDERA [Suspect]
     Active Substance: DIMETHYL FUMARATE
     Indication: MULTIPLE SCLEROSIS
     Route: 048
     Dates: start: 20140917, end: 20140923
  2. TECFIDERA [Suspect]
     Active Substance: DIMETHYL FUMARATE
     Indication: MULTIPLE SCLEROSIS
     Route: 048
     Dates: start: 20140924

REACTIONS (17)
  - Hypophagia [Not Recovered/Not Resolved]
  - Flatulence [Not Recovered/Not Resolved]
  - Drug dose omission [Recovered/Resolved]
  - Insomnia [Not Recovered/Not Resolved]
  - Gastroenteritis viral [Unknown]
  - Nausea [Not Recovered/Not Resolved]
  - Gastric disorder [Not Recovered/Not Resolved]
  - Eructation [Not Recovered/Not Resolved]
  - Abdominal distension [Unknown]
  - Abdominal pain upper [Not Recovered/Not Resolved]
  - Vomiting [Recovered/Resolved]
  - Pain [Unknown]
  - Abdominal discomfort [Not Recovered/Not Resolved]
  - White blood cell count decreased [Unknown]
  - Decreased immune responsiveness [Unknown]
  - Tremor [Unknown]
  - Diarrhoea [Not Recovered/Not Resolved]

NARRATIVE: CASE EVENT DATE: 201409
